FAERS Safety Report 12401789 (Version 1)
Quarter: 2016Q2

REPORT INFORMATION
  Report Type: Spontaneous
  Country: US (occurrence: US)
  Receive Date: 20160525
  Receipt Date: 20160525
  Transmission Date: 20160815
  Serious: No
  Sender: FDA-Public Use
  Company Number: US-PFIZER INC-2016238239

PATIENT
  Age: 53 Year
  Sex: Female
  Weight: 122 kg

DRUGS (5)
  1. DUAVEE [Suspect]
     Active Substance: BAZEDOXIFENE ACETATE\ESTROGENS, CONJUGATED
     Indication: HORMONE REPLACEMENT THERAPY
     Dosage: 1 DF, DAILY
     Route: 048
     Dates: start: 201601
  2. HYDROCHLOROTHIAZIDE AND LISINOPRIL [Concomitant]
     Active Substance: HYDROCHLOROTHIAZIDE\LISINOPRIL
     Dosage: UNK, 1X/DAY
  3. ATORVASTATIN [Concomitant]
     Active Substance: ATORVASTATIN
     Dosage: 40 MG, 1X/DAY, IN EVENING
  4. RANITIDINE. [Concomitant]
     Active Substance: RANITIDINE
     Dosage: 50 MG, (50MG/2ML)
  5. GLIPIZIDE. [Concomitant]
     Active Substance: GLIPIZIDE
     Dosage: 2.5 MG, 1X/DAY

REACTIONS (1)
  - Blood glucose abnormal [Not Recovered/Not Resolved]
